FAERS Safety Report 20126056 (Version 1)
Quarter: 2021Q4

REPORT INFORMATION
  Report Type: Spontaneous
  Country: JP (occurrence: JP)
  Receive Date: 20211129
  Receipt Date: 20211129
  Transmission Date: 20220303
  Serious: Yes (Hospitalization, Other)
  Sender: FDA-Public Use
  Company Number: JP-MYLANLABS-2021M1087783

PATIENT
  Age: 54 Year
  Sex: Male
  Weight: 56 kg

DRUGS (6)
  1. CLOPIDOGREL [Suspect]
     Active Substance: CLOPIDOGREL BISULFATE
     Indication: Cardiac ventricular thrombosis
     Route: 065
  2. ASPIRIN [Suspect]
     Active Substance: ASPIRIN
     Indication: Cardiac ventricular thrombosis
     Route: 065
  3. ASPIRIN [Suspect]
     Active Substance: ASPIRIN
     Indication: Antiplatelet therapy
  4. WARFARIN [Suspect]
     Active Substance: WARFARIN
     Indication: Anticoagulant therapy
     Route: 065
  5. WARFARIN [Suspect]
     Active Substance: WARFARIN
     Indication: Cardiac ventricular thrombosis
  6. EVEROLIMUS [Concomitant]
     Active Substance: EVEROLIMUS
     Indication: Acute myocardial infarction
     Dosage: DRUG-ELUTING STENT
     Route: 065

REACTIONS (2)
  - Hepatic function abnormal [Unknown]
  - Drug ineffective [Unknown]
